FAERS Safety Report 14430368 (Version 1)
Quarter: 2018Q1

REPORT INFORMATION
  Report Type: Spontaneous
  Country: US (occurrence: US)
  Receive Date: 20180123
  Receipt Date: 20180123
  Transmission Date: 20180509
  Serious: No
  Sender: FDA-Public Use
  Company Number: None

PATIENT
  Age: 36 Year
  Sex: Female

DRUGS (3)
  1. CENTRUM MULTIVITAMIN [Concomitant]
  2. SUBOXONE [Suspect]
     Active Substance: BUPRENORPHINE HYDROCHLORIDE\NALOXONE HYDROCHLORIDE
     Dosage: ?          QUANTITY:2 SUBLINGUAL FILM;?
     Route: 060
     Dates: start: 20110701
  3. STOOL SOFTENER (DOCUSATE) [Concomitant]
     Active Substance: DOCUSATE

REACTIONS (8)
  - Oral mucosal erythema [None]
  - Paraesthesia oral [None]
  - Chemical burn [None]
  - Oral mucosal exfoliation [None]
  - Glossitis [None]
  - Oral pain [None]
  - Oral discomfort [None]
  - Glossodynia [None]

NARRATIVE: CASE EVENT DATE: 20180117
